FAERS Safety Report 9904569 (Version 2)
Quarter: 2014Q1

REPORT INFORMATION
  Report Type: Spontaneous
  Country: FR (occurrence: FR)
  Receive Date: 20140218
  Receipt Date: 20140227
  Transmission Date: 20141002
  Serious: No
  Sender: FDA-Public Use
  Company Number: FR-ROCHE-1349513

PATIENT
  Age: 73 Year
  Sex: Male
  Weight: 78 kg

DRUGS (4)
  1. XELODA [Suspect]
     Indication: HEAD AND NECK CANCER
     Route: 048
     Dates: start: 20120403
  2. TARCEVA [Suspect]
     Indication: HEAD AND NECK CANCER
     Route: 048
     Dates: start: 20131115
  3. PRAVASTATINE [Concomitant]
     Route: 048
  4. OGAST [Concomitant]
     Dosage: 15MG
     Route: 048

REACTIONS (2)
  - Mucosal inflammation [Recovering/Resolving]
  - Wrong technique in drug usage process [Unknown]
